FAERS Safety Report 8759696 (Version 3)
Quarter: 2012Q4

REPORT INFORMATION
  Report Type: Report from Study
  Country: JP (occurrence: JP)
  Receive Date: 20120830
  Receipt Date: 20121119
  Transmission Date: 20130627
  Serious: Yes (Hospitalization)
  Sender: FDA-Public Use
  Company Number: JP-B.I. PHARMACEUTICALS,INC./RIDGEFIELD-2012-BP-20336NB

PATIENT
  Age: 67 Year
  Sex: Female
  Weight: 58.2 kg

DRUGS (2)
  1. MICAMLO COMBINATION [Suspect]
     Indication: HYPERTENSION
     Dosage: 1 RT
     Route: 048
     Dates: start: 20110709
  2. MYSLEE [Concomitant]
     Indication: INSOMNIA
     Dosage: 5 mg
     Route: 048

REACTIONS (2)
  - Spinal compression fracture [Recovered/Resolved]
  - Road traffic accident [Unknown]
